FAERS Safety Report 8228713 (Version 3)
Quarter: 2012Q4

REPORT INFORMATION
  Report Type: Spontaneous
  Country: DK (occurrence: None)
  Receive Date: 20111027
  Receipt Date: 20120912
  Transmission Date: 20130627
  Serious: Yes (Hospitalization)
  Sender: FDA-Public Use
  Company Number: 2011MA015368

PATIENT
  Age: 37 Year
  Sex: Male

DRUGS (3)
  1. DICLOFENAC SODIUM [Suspect]
     Indication: BACK PAIN
     Route: 048
     Dates: start: 20090501, end: 20110930
  2. IBUPROFEN [Suspect]
     Indication: BACK PAIN
     Route: 048
     Dates: start: 20110601, end: 20110930
  3. AMITRIPTYLINE HYDROCHLORIDE [Concomitant]

REACTIONS (4)
  - GASTRITIS [None]
  - DUODENITIS [None]
  - PEPTIC ULCER [None]
  - HELICOBACTER TEST POSITIVE [None]
